FAERS Safety Report 9942359 (Version 1)
Quarter: 2014Q1

REPORT INFORMATION
  Report Type: Spontaneous
  Country: JP (occurrence: JP)
  Receive Date: 20140303
  Receipt Date: 20140303
  Transmission Date: 20141002
  Serious: Yes (Death)
  Sender: FDA-Public Use
  Company Number: JP-PFIZER INC-2014059567

PATIENT
  Sex: Male

DRUGS (4)
  1. AMLODIN [Suspect]
     Indication: HYPERTENSION
     Dosage: 5 MG, DAILY
     Route: 048
     Dates: start: 201311
  2. AZILVA [Concomitant]
     Route: 048
  3. ZYLORIC [Concomitant]
     Route: 048
  4. JZOLOFT [Concomitant]
     Route: 048

REACTIONS (1)
  - Death [Fatal]
